FAERS Safety Report 4975759-5 (Version None)
Quarter: 2006Q2

REPORT INFORMATION
  Report Type: 
  Country: None (occurrence: None)
  Receive Date: 20060418
  Receipt Date: 20060221
  Transmission Date: 20061013
  Serious: Yes (Other)
  Sender: FDA-Public Use
  Company Number: GBWYE422623FEB06

PATIENT
  Sex: Female

DRUGS (2)
  1. ENBREL [Suspect]
     Indication: RHEUMATOID ARTHRITIS
     Dosage: 25 MG, TWICE, INTERVAL UNSPECIFIED
     Dates: start: 20040624
  2. METHOTREXATE [Concomitant]

REACTIONS (1)
  - LARGE INTESTINE PERFORATION [None]
